FAERS Safety Report 8843044 (Version 1)
Quarter: 2012Q4

REPORT INFORMATION
  Report Type: 
  Country: DK (occurrence: DK)
  Receive Date: 20121016
  Receipt Date: 20121016
  Transmission Date: 20130627
  Serious: Yes (Hospitalization)
  Sender: FDA-Public Use
  Company Number: DK-GLAXOSMITHKLINE-B0837191A

PATIENT
  Age: 72 None
  Sex: Male

DRUGS (3)
  1. ZINACEF [Suspect]
     Indication: INFECTION
     Dosage: 1.5G Three times per day
     Route: 048
     Dates: start: 20100107, end: 20100111
  2. PRIMCILLIN [Suspect]
     Indication: INFECTION
     Dosage: 800MG Three times per day
     Route: 048
     Dates: start: 20100109, end: 20100319
  3. ZINACEF [Suspect]
     Indication: INFECTION
     Route: 065
     Dates: start: 201002

REACTIONS (8)
  - Oesophagitis [Unknown]
  - Paraesthesia [Not Recovered/Not Resolved]
  - Fatigue [Not Recovered/Not Resolved]
  - Pain in extremity [Not Recovered/Not Resolved]
  - Dysphonia [Unknown]
  - Oropharyngeal pain [Unknown]
  - Hiccups [Recovered/Resolved]
  - Dysphagia [Unknown]
